FAERS Safety Report 12989901 (Version 2)
Quarter: 2017Q1

REPORT INFORMATION
  Report Type: Spontaneous
  Country: US (occurrence: US)
  Receive Date: 20161201
  Receipt Date: 20170103
  Transmission Date: 20170428
  Serious: No
  Sender: FDA-Public Use
  Company Number: US-PFIZER INC-2016545706

PATIENT
  Age: 71 Year
  Sex: Female

DRUGS (15)
  1. IBRANCE [Suspect]
     Active Substance: PALBOCICLIB
     Indication: BREAST CANCER FEMALE
     Dosage: 125 MG, DAILY
     Route: 048
     Dates: start: 20161129, end: 20161220
  2. CHOLECALCIFEROL [Concomitant]
     Active Substance: CHOLECALCIFEROL
     Dosage: 2000 IU, 2X/DAY
     Route: 048
  3. ZOFRAN [Concomitant]
     Active Substance: ONDANSETRON HYDROCHLORIDE
     Indication: NAUSEA
     Dosage: 8 MG, AS NEEDED (TAKE 1 PO Q8H PRN)
     Route: 048
  4. COENZYME Q10 [Concomitant]
     Active Substance: UBIDECARENONE
     Dosage: 60 MG, DAILY
     Route: 048
  5. TURMERIC [Concomitant]
     Active Substance: TURMERIC
     Dosage: 500 MG, 2X/DAY
     Route: 048
  6. DEXAMETHASONE. [Concomitant]
     Active Substance: DEXAMETHASONE
     Indication: PAIN
     Dosage: 4 MG, 2X/DAY
     Route: 048
  7. ZINC CHELATE [Concomitant]
     Dosage: 0.3 MG, 3X/DAY
     Route: 048
  8. GLUTATHIONE [Concomitant]
     Active Substance: GLUTATHIONE
     Dosage: 1 DF, 3X/DAY
     Route: 048
  9. PROCHLORPERAZINE MALEATE. [Concomitant]
     Active Substance: PROCHLORPERAZINE MALEATE
     Indication: NAUSEA
     Dosage: 10 MG, AS NEEDED (TAKE 1 PO Q4-6H PRN)
     Route: 048
  10. OMEGA-3 ACIDS [Concomitant]
     Active Substance: OMEGA-3 FATTY ACIDS
     Dosage: 860 MG, 3X/DAY
     Route: 048
  11. LETROZOLE. [Concomitant]
     Active Substance: LETROZOLE
     Dosage: 2.5 MG, DAILY
     Route: 048
  12. NORCO [Concomitant]
     Active Substance: ACETAMINOPHEN\HYDROCODONE BITARTRATE
     Indication: PAIN
     Dosage: UNK UNK (HYDROCODONE BITARTRATE: 5MG; PARACETAMOL: 325MG) (TAKE 1 PO Q4-6H PRN), AS NEEDED
     Route: 048
  13. TRAMADOL HCL [Concomitant]
     Active Substance: TRAMADOL HYDROCHLORIDE
     Indication: PAIN
     Dosage: 50 MG, AS NEEDED (Q4-6 HOURS PRN)
     Route: 048
  14. L-CARNITINE [Concomitant]
     Active Substance: LEVOCARNITINE
     Dosage: 250 MG, DAILY
     Route: 048
  15. IRON [Concomitant]
     Active Substance: IRON
     Dosage: 27 MG, DAILY
     Route: 048

REACTIONS (4)
  - Pain [Unknown]
  - Fatigue [Unknown]
  - Stomatitis [Unknown]
  - Diarrhoea [Unknown]
